FAERS Safety Report 4959585-9 (Version None)
Quarter: 2006Q1

REPORT INFORMATION
  Report Type: 
  Country: None (occurrence: None)
  Receive Date: 20060331
  Receipt Date: 20060303
  Transmission Date: 20060701
  Serious: Yes (Life-Threatening, Hospitalization)
  Sender: FDA-Public Use
  Company Number: PHBS2006PL03571

PATIENT
  Age: 34 Year
  Sex: Male

DRUGS (1)
  1. TEGRETOL [Suspect]
     Indication: POST-TRAUMATIC EPILEPSY
     Dosage: 72 G, ONCE/SINGLE
     Route: 048

REACTIONS (20)
  - AGITATION [None]
  - AREFLEXIA [None]
  - BALANCE DISORDER [None]
  - BLOOD PRESSURE DECREASED [None]
  - BRONCHOPNEUMONIA [None]
  - CEREBELLAR SYNDROME [None]
  - COMA [None]
  - COORDINATION ABNORMAL [None]
  - DRUG LEVEL INCREASED [None]
  - FEELING COLD [None]
  - GASTRIC LAVAGE [None]
  - HYPOREFLEXIA [None]
  - HYPOTONIA [None]
  - INCOHERENT [None]
  - INTENTIONAL OVERDOSE [None]
  - INTUBATION [None]
  - LOSS OF CONSCIOUSNESS [None]
  - SUICIDE ATTEMPT [None]
  - TACHYCARDIA [None]
  - UNRESPONSIVE TO PAIN STIMULI [None]
